FAERS Safety Report 8169540-6 (Version None)
Quarter: 2012Q1

REPORT INFORMATION
  Report Type: 
  Country: None (occurrence: None)
  Receive Date: 20120228
  Receipt Date: 20120216
  Transmission Date: 20120608
  Serious: Yes (Hospitalization, Other)
  Sender: FDA-Public Use
  Company Number: US-BAYER-2011-110370

PATIENT
  Age: 25 Year
  Sex: Female
  Weight: 84.354 kg

DRUGS (8)
  1. HYDROCODONE BITARTRATE AND ACETAMINOPHEN [Concomitant]
  2. VALPROIC ACID [Concomitant]
     Dosage: 250 MG, UNK
  3. YASMIN [Suspect]
     Dosage: UNK
     Dates: start: 20070101, end: 20090101
  4. SULFAMETHOXAZOLE AND TRIMETHOPRIM DOUBLE STRENGTH [Concomitant]
  5. XANAX [Concomitant]
     Dosage: 0.25 MG, BID
  6. DROSPIRENONE AND ETHINYL ESTRADIOL [Suspect]
     Dosage: UNK
     Dates: start: 20070101, end: 20090101
  7. RISPERDAL [Concomitant]
     Dosage: 0.5 MG, UNK
  8. LITHIUM CARBONATE [Concomitant]
     Dosage: 150 MG, UNK

REACTIONS (7)
  - CHOLECYSTITIS ACUTE [None]
  - DEPRESSION [None]
  - ABDOMINAL PAIN [None]
  - CHOLELITHIASIS [None]
  - PANIC ATTACK [None]
  - ANXIETY [None]
  - PALPITATIONS [None]
